FAERS Safety Report 9210567 (Version 1)
Quarter: 2013Q2

REPORT INFORMATION
  Report Type: Spontaneous
  Country: CH (occurrence: CH)
  Receive Date: 20130404
  Receipt Date: 20130404
  Transmission Date: 20140414
  Serious: Yes (Hospitalization, Other)
  Sender: FDA-Public Use
  Company Number: CH-009507513-1303CHE014214

PATIENT
  Age: 24 Year
  Sex: Female

DRUGS (2)
  1. REMERON [Suspect]
     Dosage: UNK UNK, QD
     Route: 048
     Dates: start: 20130215, end: 20130215
  2. BROMAZEPAM [Suspect]
     Dosage: ONCE
     Route: 048
     Dates: start: 20130215, end: 20130215

REACTIONS (3)
  - Coma [Recovered/Resolved]
  - Suicide attempt [Recovered/Resolved]
  - Intentional overdose [Unknown]
